FAERS Safety Report 8999024 (Version 2)
Quarter: 2013Q1

REPORT INFORMATION
  Report Type: Report from Study
  Country: NO (occurrence: NO)
  Receive Date: 20130103
  Receipt Date: 20130110
  Transmission Date: 20140127
  Serious: Yes (Other)
  Sender: FDA-Public Use
  Company Number: NO-BAYER-2013-000679

PATIENT
  Sex: Female

DRUGS (1)
  1. LEVONORGESTREL [Suspect]
     Indication: CONTRACEPTION
     Dosage: 20 MCG/24HR, CONT
     Route: 015
     Dates: start: 2007, end: 20130102

REACTIONS (3)
  - Cervical conisation [None]
  - Device dislocation [None]
  - Cervical dysplasia [None]
